FAERS Safety Report 9257533 (Version 1)
Quarter: 2013Q1

REPORT INFORMATION
  Report Type: Spontaneous
  Country: US (occurrence: None)
  Receive Date: 20121212
  Receipt Date: 20121212
  Transmission Date: 20140127
  Serious: No
  Sender: FDA-Public Use
  Company Number: 1209USA005127

PATIENT
  Age: 61 Year
  Sex: Male

DRUGS (5)
  1. VICTRELIS [Suspect]
     Indication: HEPATITIS C
     Route: 048
     Dates: start: 20120626
  2. PEGASYS (PEGINTEFERON ALFA-2A) [Concomitant]
  3. RIBAPAK (RIBAVIRIN) [Concomitant]
  4. NEUMEGA (OPRELVEKIN) [Concomitant]
  5. OXYCODONE (OXYCODONE) [Concomitant]

REACTIONS (2)
  - Abdominal pain upper [None]
  - Somnolence [None]
